FAERS Safety Report 6709615-9 (Version None)
Quarter: 2010Q2

REPORT INFORMATION
  Report Type: 
  Country: None (occurrence: None)
  Receive Date: 20100504
  Receipt Date: 20100308
  Transmission Date: 20101027
  Serious: Yes (Other)
  Sender: FDA-Public Use
  Company Number: FR-PFIZER INC-2010054366

PATIENT
  Age: 68 Year
  Sex: Female

DRUGS (6)
  1. ATARAX [Suspect]
     Dosage: UNK
     Dates: start: 20091014
  2. VOGALENE [Suspect]
     Indication: NAUSEA
     Dosage: SINGLE DOSE
     Route: 048
     Dates: start: 20091013, end: 20091013
  3. ABACAVIR SULFATE [Suspect]
     Indication: ACQUIRED IMMUNODEFICIENCY SYNDROME
     Dosage: 1 DF, UNK
     Route: 048
     Dates: start: 20091007, end: 20091014
  4. REYATAZ [Suspect]
     Indication: ACQUIRED IMMUNODEFICIENCY SYNDROME
     Dosage: 300 MG, DAILY
     Route: 048
     Dates: start: 20091007, end: 20091014
  5. NORVIR [Suspect]
     Indication: ACQUIRED IMMUNODEFICIENCY SYNDROME
     Dosage: 100 MG, DAILY
     Route: 048
     Dates: start: 20091007, end: 20091014
  6. AERIUS [Concomitant]
     Dosage: UNK
     Dates: start: 20091014

REACTIONS (8)
  - ANGIOEDEMA [None]
  - BLOOD PRESSURE INCREASED [None]
  - LIP SWELLING [None]
  - LIVEDO RETICULARIS [None]
  - PALMAR ERYTHEMA [None]
  - PRURITUS [None]
  - SKIN LESION [None]
  - SWELLING FACE [None]
